FAERS Safety Report 9795808 (Version 1)
Quarter: 2014Q1

REPORT INFORMATION
  Report Type: Report from Study
  Country: IL (occurrence: IL)
  Receive Date: 20140103
  Receipt Date: 20140103
  Transmission Date: 20141002
  Serious: Yes (Death)
  Sender: FDA-Public Use
  Company Number: IL-UCBSA-107879

PATIENT
  Sex: 0

DRUGS (2)
  1. LEVETIRACETAM [Suspect]
     Dosage: UNKNOWN DOSE
  2. TEMOZOLOMIDE [Suspect]
     Indication: BRAIN NEOPLASM MALIGNANT
     Dosage: UNKNOWN DOSE

REACTIONS (1)
  - Hepatic failure [Fatal]
